FAERS Safety Report 4276479-5 (Version None)
Quarter: 2004Q1

REPORT INFORMATION
  Report Type: 
  Country: None (occurrence: None)
  Receive Date: 20040120
  Receipt Date: 20040105
  Transmission Date: 20041129
  Serious: Yes (Life-Threatening, Hospitalization, Other)
  Sender: FDA-Public Use
  Company Number: 2003119672

PATIENT
  Sex: Male

DRUGS (5)
  1. GEODON [Suspect]
     Indication: ABNORMAL BEHAVIOUR
     Dosage: 120 MG (BID), ORAL
     Route: 048
     Dates: start: 20030101
  2. DILANTIN [Suspect]
     Indication: CONVULSION
     Dosage: ORAL
     Route: 048
  3. CARBAMAZEPINE [Suspect]
     Indication: ILL-DEFINED DISORDER
  4. LORAZEPAM [Suspect]
     Indication: ILL-DEFINED DISORDER
  5. ALL OTHER THERAPEUTIC PRODUCTS [Suspect]
     Indication: ILL-DEFINED DISORDER

REACTIONS (22)
  - ABNORMAL BEHAVIOUR [None]
  - AGITATION [None]
  - AMMONIA ABNORMAL [None]
  - BIPOLAR DISORDER [None]
  - CONFUSIONAL STATE [None]
  - DEPRESSION [None]
  - DRUG LEVEL CHANGED [None]
  - DRUG LEVEL DECREASED [None]
  - GRAND MAL CONVULSION [None]
  - HOSTILITY [None]
  - HYPOTHERMIA [None]
  - IRRITABILITY [None]
  - MANIA [None]
  - METABOLIC DISORDER [None]
  - NERVOUS SYSTEM DISORDER [None]
  - PARTIAL SEIZURES [None]
  - PSYCHOMOTOR HYPERACTIVITY [None]
  - SLEEP DISORDER [None]
  - SLEEP WALKING [None]
  - SNORING [None]
  - STARING [None]
  - TEMPORAL LOBE EPILEPSY [None]
